FAERS Safety Report 5289522-1 (Version None)
Quarter: 2007Q2

REPORT INFORMATION
  Report Type: 
  Country: None (occurrence: None)
  Receive Date: 20070402
  Receipt Date: 20070324
  Transmission Date: 20071010
  Serious: Yes (Hospitalization)
  Sender: FDA-Public Use
  Company Number: 163-20785-07031407

PATIENT
  Age: 60 Year
  Sex: Female
  Weight: 107.2 kg

DRUGS (4)
  1. THALOMID [Suspect]
     Indication: LUNG ADENOCARCINOMA
     Dosage: SEE IMAGE
     Route: 048
     Dates: start: 20060707, end: 20070225
  2. PACLITAXEL [Suspect]
     Indication: LUNG ADENOCARCINOMA
     Dosage: 225MG/M2, OVER 3 HOURS ON DAY 1 EVERY 21 DAYS X 2, INTRAVENOUS
     Route: 042
     Dates: start: 20060707
  3. CARBOPLATIN [Suspect]
     Indication: LUNG ADENOCARCINOMA
     Dosage: AUC=6 OVER 15-30 MIN ON DAY 1 EVERY 21 DAYS X 2, INTRAVENOUS
     Route: 042
     Dates: start: 20060707
  4. ZYPREXA [Concomitant]

REACTIONS (9)
  - CARDIAC TAMPONADE [None]
  - CHEST PAIN [None]
  - CONFUSIONAL STATE [None]
  - DYSPNOEA [None]
  - HALLUCINATION [None]
  - PERICARDIAL EFFUSION [None]
  - PERICARDITIS [None]
  - RESTLESSNESS [None]
  - SYNCOPE [None]
